FAERS Safety Report 11185456 (Version 1)
Quarter: 2015Q2

REPORT INFORMATION
  Report Type: Spontaneous
  Country: US (occurrence: US)
  Receive Date: 20150612
  Receipt Date: 20150612
  Transmission Date: 20150821
  Serious: Yes (Congenital Anomaly)
  Sender: FDA-Public Use
  Company Number: US-ELI_LILLY_AND_COMPANY-US201504006067

PATIENT

DRUGS (2)
  1. PROZAC [Suspect]
     Active Substance: FLUOXETINE HYDROCHLORIDE
     Indication: DEPRESSION
     Dosage: 20 MG, QD
     Route: 064
  2. NIFEREX                            /00023531/ [Concomitant]
     Dosage: 150 MG, UNKNOWN
     Route: 064

REACTIONS (5)
  - Foetal exposure during pregnancy [Recovered/Resolved]
  - Single umbilical artery [Recovered/Resolved]
  - Premature baby [Recovered/Resolved]
  - Feeding disorder neonatal [Recovered/Resolved]
  - Fallot^s tetralogy [Unknown]
